FAERS Safety Report 9328340 (Version 1)
Quarter: 2013Q2

REPORT INFORMATION
  Report Type: Spontaneous
  Country: US (occurrence: US)
  Receive Date: 20130604
  Receipt Date: 20130604
  Transmission Date: 20140414
  Serious: No
  Sender: FDA-Public Use
  Company Number: US-SANOFI-AVENTIS-2012SA048334

PATIENT
  Age: 65 Year
  Sex: Female

DRUGS (4)
  1. LANTUS SOLOSTAR [Suspect]
     Indication: TYPE 2 DIABETES MELLITUS
     Dosage: DOSE:5 UNIT(S)
     Route: 058
     Dates: start: 201204
  2. LANTUS SOLOSTAR [Suspect]
     Indication: TYPE 2 DIABETES MELLITUS
     Dosage: DOSE:16 UNIT(S)
     Route: 058
     Dates: start: 2012
  3. SOLOSTAR [Suspect]
     Indication: DEVICE THERAPY
     Dates: start: 201204
  4. SOLOSTAR [Suspect]
     Indication: DEVICE THERAPY
     Dates: start: 2012

REACTIONS (3)
  - Local swelling [Not Recovered/Not Resolved]
  - Blood pressure increased [Not Recovered/Not Resolved]
  - Blood glucose decreased [Unknown]
